FAERS Safety Report 5256039-X (Version None)
Quarter: 2007Q1

REPORT INFORMATION
  Report Type: 
  Country: None (occurrence: None)
  Receive Date: 20070306
  Receipt Date: 20070228
  Transmission Date: 20070707
  Serious: Yes (Other)
  Sender: FDA-Public Use
  Company Number: US-RB-005415-07

PATIENT
  Age: 23 Year
  Sex: Male

DRUGS (2)
  1. SUBOXONE [Suspect]
     Dosage: UNKNOWN
     Route: 060
     Dates: start: 20070201
  2. WELLBUTRIN [Concomitant]
     Dates: start: 20070201, end: 20070201

REACTIONS (1)
  - CONVULSION [None]
